FAERS Safety Report 19873009 (Version 1)
Quarter: 2021Q3

REPORT INFORMATION
  Report Type: Spontaneous
  Country: US (occurrence: US)
  Receive Date: 20210923
  Receipt Date: 20210923
  Transmission Date: 20211014
  Serious: No
  Sender: FDA-Public Use
  Company Number: US-PFIZER INC-202101092976

PATIENT
  Age: 58 Year
  Sex: Female
  Weight: 70.31 kg

DRUGS (1)
  1. SOMAVERT [Suspect]
     Active Substance: PEGVISOMANT
     Indication: ACROMEGALY
     Dosage: 10 MG, TWICE WEEKLY

REACTIONS (2)
  - Off label use [Unknown]
  - Device leakage [Unknown]

NARRATIVE: CASE EVENT DATE: 20210823
